FAERS Safety Report 4521374-7 (Version None)
Quarter: 2004Q4

REPORT INFORMATION
  Report Type: 
  Country: None (occurrence: None)
  Receive Date: 20041208
  Receipt Date: 20030605
  Transmission Date: 20050328
  Serious: Yes (Hospitalization, Disabling)
  Sender: FDA-Public Use
  Company Number: US-MERCK-0306USA00821

PATIENT
  Age: 49 Year
  Sex: Male

DRUGS (1)
  1. VIOXX [Suspect]
     Route: 048

REACTIONS (21)
  - ADVERSE EVENT [None]
  - AGE INDETERMINATE MYOCARDIAL INFARCTION [None]
  - ATELECTASIS [None]
  - CHEST PAIN [None]
  - CHRONIC OBSTRUCTIVE AIRWAYS DISEASE [None]
  - CORONARY ARTERY DISEASE [None]
  - DIABETES MELLITUS NON-INSULIN-DEPENDENT [None]
  - DYSPNOEA [None]
  - HYPOKALAEMIA [None]
  - INFLUENZA LIKE ILLNESS [None]
  - OBESITY [None]
  - PAIN [None]
  - PARANOIA [None]
  - PARANOID PERSONALITY DISORDER [None]
  - POLYTRAUMATISM [None]
  - POST PROCEDURAL COMPLICATION [None]
  - PYREXIA [None]
  - SPERMATOCELE [None]
  - SPINAL CORD DISORDER [None]
  - SPINAL DISORDER [None]
  - VENTRICULAR DYSFUNCTION [None]
